FAERS Safety Report 17974253 (Version 4)
Quarter: 2021Q2

REPORT INFORMATION
  Report Type: Spontaneous
  Country: US (occurrence: US)
  Receive Date: 20200702
  Receipt Date: 20210624
  Transmission Date: 20210717
  Serious: Yes (Other)
  Sender: FDA-Public Use
  Company Number: US-GILEAD-2020-0478493

PATIENT
  Age: 39 Year
  Sex: Male
  Weight: 97.51 kg

DRUGS (12)
  1. BENZONATATE. [Concomitant]
     Active Substance: BENZONATATE
  2. ASPIRINE [Concomitant]
     Active Substance: ASPIRIN
  3. TRAZADOL [Concomitant]
     Active Substance: TRAZODONE HYDROCHLORIDE
  4. TRUVADA [Suspect]
     Active Substance: EMTRICITABINE\TENOFOVIR DISOPROXIL FUMARATE
     Dosage: UNK
     Route: 048
     Dates: start: 2005, end: 2016
  5. REYATAZ [Concomitant]
     Active Substance: ATAZANAVIR SULFATE
     Dosage: UNK
     Dates: start: 20140515, end: 20141006
  6. TRUVADA [Suspect]
     Active Substance: EMTRICITABINE\TENOFOVIR DISOPROXIL FUMARATE
     Dosage: UNK
     Route: 048
     Dates: start: 20131002, end: 2015
  7. NORVIR [Concomitant]
     Active Substance: RITONAVIR
     Dosage: UNK
     Dates: start: 20140514, end: 20140515
  8. TRUVADA [Suspect]
     Active Substance: EMTRICITABINE\TENOFOVIR DISOPROXIL FUMARATE
     Indication: HIV INFECTION
     Dosage: UNK
     Route: 048
     Dates: start: 2005, end: 2015
  9. ACETAMINOPHEN. [Concomitant]
     Active Substance: ACETAMINOPHEN
  10. VITAMIN D NOS [Concomitant]
     Active Substance: VITAMIN D NOS
  11. TRUVADA [Suspect]
     Active Substance: EMTRICITABINE\TENOFOVIR DISOPROXIL FUMARATE
     Dosage: UNK
     Route: 048
     Dates: start: 20140514, end: 20150612
  12. TRIUMEQ [Concomitant]
     Active Substance: ABACAVIR SULFATE\DOLUTEGRAVIR SODIUM\LAMIVUDINE
     Dosage: UNK
     Dates: start: 201509

REACTIONS (9)
  - Renal failure [Unknown]
  - Multiple fractures [Not Recovered/Not Resolved]
  - Bone density decreased [Unknown]
  - Osteoporosis [Not Recovered/Not Resolved]
  - Renal impairment [Not Recovered/Not Resolved]
  - Bone loss [Unknown]
  - Nephropathy [Unknown]
  - Tooth loss [Unknown]
  - Chronic kidney disease [Not Recovered/Not Resolved]

NARRATIVE: CASE EVENT DATE: 20131105
